FAERS Safety Report 18485858 (Version 1)
Quarter: 2020Q4

REPORT INFORMATION
  Report Type: Spontaneous
  Country: CN (occurrence: CN)
  Receive Date: 20201110
  Receipt Date: 20201110
  Transmission Date: 20210114
  Serious: Yes (Other)
  Sender: FDA-Public Use
  Company Number: CN-PFIZER INC-2020439097

PATIENT
  Age: 46 Year
  Sex: Female
  Weight: 50.9 kg

DRUGS (1)
  1. ZITHROMAX [Suspect]
     Active Substance: AZITHROMYCIN DIHYDRATE
     Indication: MYCOPLASMA INFECTION
     Dosage: 0.5 G, 1X/DAY
     Route: 041
     Dates: start: 20200602, end: 20200602

REACTIONS (5)
  - Paralysis [Recovered/Resolved]
  - Pain [Recovered/Resolved]
  - Tachypnoea [Recovered/Resolved]
  - Headache [Recovered/Resolved]
  - Chest discomfort [Recovered/Resolved]

NARRATIVE: CASE EVENT DATE: 20200602
